FAERS Safety Report 20670677 (Version 1)
Quarter: 2022Q2

REPORT INFORMATION
  Report Type: Spontaneous
  Country: US (occurrence: None)
  Receive Date: 20220401
  Receipt Date: 20220401
  Transmission Date: 20220721
  Serious: No
  Sender: FDA-Public Use
  Company Number: None

PATIENT
  Sex: Male
  Weight: 118.84 kg

DRUGS (9)
  1. TEMOZOLOMIDE [Suspect]
     Active Substance: TEMOZOLOMIDE
     Indication: Neoplasm malignant
     Dosage: FREQUENCY : DAILY;?
     Route: 048
     Dates: start: 202111
  2. ASPIRIN [Concomitant]
     Active Substance: ASPIRIN
  3. BUSPIRONE [Concomitant]
     Active Substance: BUSPIRONE HYDROCHLORIDE
  4. LEVETIRACETAM [Concomitant]
     Active Substance: LEVETIRACETAM
  5. LORAZEPAM [Concomitant]
     Active Substance: LORAZEPAM
  6. NADOLOL [Concomitant]
     Active Substance: NADOLOL
  7. OMEPRAZOLE [Concomitant]
     Active Substance: OMEPRAZOLE
  8. NICODERM CQ [Concomitant]
     Active Substance: NICOTINE
  9. ONDANSERTON [Concomitant]

REACTIONS (1)
  - Malignant neoplasm progression [None]
